FAERS Safety Report 14658453 (Version 3)
Quarter: 2018Q3

REPORT INFORMATION
  Report Type: Spontaneous
  Country: US (occurrence: US)
  Receive Date: 20180320
  Receipt Date: 20180906
  Transmission Date: 20181010
  Serious: No
  Sender: FDA-Public Use
  Company Number: US-PFIZER INC-2018110803

PATIENT
  Age: 72 Year
  Sex: Male

DRUGS (1)
  1. BOSULIF [Suspect]
     Active Substance: BOSUTINIB MONOHYDRATE
     Indication: CHRONIC MYELOID LEUKAEMIA
     Dosage: 400 MG, ONCE A DAY (QD)
     Route: 048
     Dates: start: 20180221

REACTIONS (4)
  - Nausea [Unknown]
  - Abdominal pain [Unknown]
  - Pain [Unknown]
  - Myalgia [Unknown]
